FAERS Safety Report 20905531 (Version 1)
Quarter: 2022Q2

REPORT INFORMATION
  Report Type: Spontaneous
  Country: IT (occurrence: IT)
  Receive Date: 20220602
  Receipt Date: 20220602
  Transmission Date: 20220721
  Serious: No
  Sender: FDA-Public Use
  Company Number: IT-LUPIN PHARMACEUTICALS INC.-2022-07892

PATIENT
  Age: 74 Year
  Sex: Male

DRUGS (5)
  1. ATORVASTATIN CALCIUM [Interacting]
     Active Substance: ATORVASTATIN CALCIUM
     Indication: Aortic aneurysm
     Dosage: 20 MG, QD
     Route: 065
  2. ATORVASTATIN CALCIUM [Interacting]
     Active Substance: ATORVASTATIN CALCIUM
     Indication: Arteriosclerosis
  3. POTASSIUM [Suspect]
     Active Substance: POTASSIUM
     Indication: Muscle spasms
     Dosage: UNK
     Route: 065
  4. MAGNESIUM [Suspect]
     Active Substance: MAGNESIUM
     Indication: Muscle spasms
     Dosage: UNK
     Route: 065
  5. SONIDEGIB [Interacting]
     Active Substance: SONIDEGIB
     Indication: Basal cell carcinoma
     Dosage: 200 MG, QD (CYCLIC THERAPY; IN CYCLES OF 30 DAYS)
     Route: 065

REACTIONS (5)
  - Drug interaction [Recovering/Resolving]
  - Muscle spasms [Recovering/Resolving]
  - Blood creatine phosphokinase increased [Recovering/Resolving]
  - Drug ineffective for unapproved indication [Unknown]
  - Off label use [Unknown]
